FAERS Safety Report 5159313-0 (Version None)
Quarter: 2006Q4

REPORT INFORMATION
  Report Type: 
  Country: None (occurrence: None)
  Receive Date: 20061120
  Receipt Date: 20061107
  Transmission Date: 20070319
  Serious: Yes (Hospitalization)
  Sender: FDA-Public Use
  Company Number: UKP06000274

PATIENT
  Age: 82 Year
  Sex: Female

DRUGS (10)
  1. DIDRONEL [Suspect]
     Dosage: ORAL
     Route: 048
     Dates: end: 20061010
  2. ASPIRIN [Suspect]
     Dosage: IV NOS
     Route: 042
     Dates: end: 20061010
  3. AMOXICILLIN [Concomitant]
  4. ATENOLOL [Concomitant]
  5. CLARITHROMYCIN [Concomitant]
  6. DOSULEPIN (DOSULEPIN) [Concomitant]
  7. OMEPRAZOLE [Concomitant]
  8. SENNA (SENNA ALEXANDRINA) [Concomitant]
  9. SIMVASTATIN [Concomitant]
  10. STRONTIUM RANELATE (STRONTIUM RANELATE) [Concomitant]

REACTIONS (5)
  - GASTRIC ULCER [None]
  - HAEMATOCHEZIA [None]
  - HAEMOGLOBIN DECREASED [None]
  - LETHARGY [None]
  - MELAENA [None]
